FAERS Safety Report 4641457-0 (Version None)
Quarter: 2005Q2

REPORT INFORMATION
  Report Type: 
  Country: None (occurrence: None)
  Receive Date: 20050421
  Receipt Date: 20050415
  Transmission Date: 20051028
  Serious: Yes (Other)
  Sender: FDA-Public Use
  Company Number: PHBS2005JP05475

PATIENT
  Age: 90 Year
  Sex: Male

DRUGS (5)
  1. DIOVAN [Suspect]
     Dosage: 80 MG, QD
     Route: 048
     Dates: end: 20050414
  2. INNOLET N [Concomitant]
     Dosage: 12 IU, QD
     Route: 058
  3. INNOLET N [Concomitant]
     Dosage: 10 IU, QD
  4. FLUITRAN [Concomitant]
     Dosage: 0.5 DF, QD
     Route: 048
  5. NORVASC [Concomitant]
     Indication: HYPERTENSION
     Dosage: 2.5 MG, QD
     Route: 048

REACTIONS (3)
  - COLD SWEAT [None]
  - HYPOGLYCAEMIA [None]
  - MALAISE [None]
